FAERS Safety Report 4962699-0 (Version None)
Quarter: 2006Q1

REPORT INFORMATION
  Report Type: 
  Country: None (occurrence: None)
  Receive Date: 20060201
  Receipt Date: 20051117
  Transmission Date: 20060701
  Serious: No
  Sender: FDA-Public Use
  Company Number: 2005PV005283

PATIENT
  Age: 83 Year
  Sex: Female

DRUGS (2)
  1. BYETTA [Suspect]
     Indication: DRUG USE FOR UNKNOWN INDICATION
     Dosage: 5 MCG; SC
     Route: 058
     Dates: start: 20051110, end: 20051115
  2. CORTISONE ACETATE TAB [Suspect]
     Indication: ARTHROPATHY
     Dosage: X1;
     Dates: start: 20051101, end: 20051101

REACTIONS (4)
  - ARTHROPATHY [None]
  - DRUG INTERACTION [None]
  - NAUSEA [None]
  - VOMITING [None]
